FAERS Safety Report 12720048 (Version 3)
Quarter: 2016Q4

REPORT INFORMATION
  Report Type: Spontaneous
  Country: US (occurrence: US)
  Receive Date: 20160907
  Receipt Date: 20161230
  Transmission Date: 20170207
  Serious: Yes (Hospitalization, Other)
  Sender: FDA-Public Use
  Company Number: US-009507513-1608USA007565

PATIENT
  Age: 70 Year
  Sex: Female
  Weight: 63.5 kg

DRUGS (9)
  1. NORVASK [Suspect]
     Active Substance: AMLODIPINE BESYLATE
     Dosage: 20 MG, QD
     Route: 048
     Dates: start: 20160722, end: 20160805
  2. ATORVASTATIN [Concomitant]
     Active Substance: ATORVASTATIN
  3. ULORIC [Concomitant]
     Active Substance: FEBUXOSTAT
  4. CALCITRIOL. [Concomitant]
     Active Substance: CALCITRIOL
  5. NORVASK [Suspect]
     Active Substance: AMLODIPINE BESYLATE
     Indication: HYPERTENSION
     Dosage: 10 MG, QD
     Route: 048
     Dates: start: 20160204, end: 20160722
  6. ZETIA [Concomitant]
     Active Substance: EZETIMIBE
  7. PRINIVIL [Suspect]
     Active Substance: LISINOPRIL
     Indication: BLOOD PRESSURE ABNORMAL
     Dosage: 40 G
     Route: 048
     Dates: start: 2011, end: 201607
  8. PREDNISONE. [Concomitant]
     Active Substance: PREDNISONE
     Indication: ARTHROPATHY
     Dosage: UNK
     Route: 048
  9. OMEGA-3 MARINE TRIGLYCERIDES [Concomitant]
     Active Substance: FISH OIL
     Dosage: TWICE DAILY

REACTIONS (14)
  - Chronic kidney disease [Not Recovered/Not Resolved]
  - Blood urea increased [Unknown]
  - Blood creatinine increased [Unknown]
  - Peripheral vascular disorder [Recovered/Resolved]
  - Carbon dioxide decreased [Recovered/Resolved]
  - Glomerular filtration rate decreased [Unknown]
  - Glomerular filtration rate decreased [Unknown]
  - Burning sensation [Not Recovered/Not Resolved]
  - Joint swelling [Not Recovered/Not Resolved]
  - Pigmentation disorder [Not Recovered/Not Resolved]
  - Blood creatinine increased [Unknown]
  - Oedema [Not Recovered/Not Resolved]
  - Blood urea increased [Unknown]
  - Peripheral swelling [Not Recovered/Not Resolved]

NARRATIVE: CASE EVENT DATE: 20160722
